FAERS Safety Report 4455784-3 (Version None)
Quarter: 2004Q3

REPORT INFORMATION
  Report Type: 
  Country: None (occurrence: None)
  Receive Date: 20040920
  Receipt Date: 20040902
  Transmission Date: 20050211
  Serious: Yes (Hospitalization)
  Sender: FDA-Public Use
  Company Number: DSA_24872_2004

PATIENT
  Age: 69 Year
  Sex: Female

DRUGS (5)
  1. RENIVACE [Suspect]
     Indication: HYPERTENSION
     Dosage: 1 DF BID PO
     Route: 048
     Dates: start: 20040217, end: 20040818
  2. 8-HOUR BAYER [Suspect]
     Indication: THROMBOSIS PROPHYLAXIS
     Dosage: 100 MG Q DAY PO
     Route: 048
     Dates: start: 20040217, end: 20040818
  3. FLUITRAN [Suspect]
     Indication: HYPERTENSION
     Dosage: 1 MG Q DAY PO
     Route: 048
     Dates: start: 20040217, end: 20040818
  4. DOGMATYL [Suspect]
     Indication: GASTRITIS
     Dosage: 1 DF Q DAY PO
     Route: 048
     Dates: start: 20040217, end: 20040818
  5. PHENLASE S, UNSPECIFIED GI PREPARTION [Suspect]
     Indication: GASTRITIS
     Dosage: 1 DF TID PO
     Route: 048
     Dates: start: 20040217, end: 20040818

REACTIONS (5)
  - ANGIONEUROTIC OEDEMA [None]
  - DRUG EFFECT DECREASED [None]
  - PRURITUS GENERALISED [None]
  - RASH GENERALISED [None]
  - SWELLING FACE [None]
